FAERS Safety Report 10206009 (Version 2)
Quarter: 2014Q2

REPORT INFORMATION
  Report Type: Spontaneous
  Country: GB (occurrence: GB)
  Receive Date: 20140530
  Receipt Date: 20140530
  Transmission Date: 20141212
  Serious: Yes (Life-Threatening, Hospitalization, Other)
  Sender: FDA-Public Use
  Company Number: GB-ROCHE-1403120

PATIENT
  Age: 55 Year
  Sex: Female

DRUGS (7)
  1. TOCILIZUMAB [Suspect]
     Indication: RHEUMATOID ARTHRITIS
     Route: 042
     Dates: start: 20140507, end: 20140507
  2. TOCILIZUMAB [Suspect]
     Route: 042
  3. CODEINE [Concomitant]
  4. OLANZAPINE [Concomitant]
  5. ZOPICLONE [Concomitant]
  6. PREGABALIN [Concomitant]
  7. IMIPRAMINE [Concomitant]

REACTIONS (3)
  - Coma scale abnormal [Recovered/Resolved]
  - Pneumonia aspiration [Unknown]
  - Depressed level of consciousness [Unknown]
